FAERS Safety Report 23070396 (Version 1)
Quarter: 2023Q4

REPORT INFORMATION
  Report Type: Spontaneous
  Country: IT (occurrence: IT)
  Receive Date: 20231016
  Receipt Date: 20231016
  Transmission Date: 20240110
  Serious: Yes (Other)
  Sender: FDA-Public Use
  Company Number: None

PATIENT
  Age: 55 Year
  Sex: Female
  Weight: 56 kg

DRUGS (2)
  1. SOLU-MEDROL [Suspect]
     Active Substance: METHYLPREDNISOLONE SODIUM SUCCINATE
     Indication: Relapsing multiple sclerosis
     Dosage: 1 VIAL AS AN ANCILLARY DRUG DURING ADMINISTRATION OF OCRELIZUMAB 300 MG; 2 DOSES 15 DAYS APART)
     Route: 042
     Dates: start: 202207, end: 202207
  2. OCRELIZUMAB [Concomitant]
     Active Substance: OCRELIZUMAB
     Dosage: TWO DOSES 15 DAYS APART
     Route: 042
     Dates: start: 202207, end: 202207

REACTIONS (2)
  - Liver disorder [Recovered/Resolved]
  - Liver function test increased [Recovered/Resolved]

NARRATIVE: CASE EVENT DATE: 20220715
